FAERS Safety Report 5185990-4 (Version None)
Quarter: 2006Q4

REPORT INFORMATION
  Report Type: 
  Country: None (occurrence: None)
  Receive Date: 20061220
  Receipt Date: 20061010
  Transmission Date: 20070319
  Serious: No
  Sender: FDA-Public Use
  Company Number: US-GLAXOSMITHKLINE-A0623005A

PATIENT
  Age: 26 Year
  Sex: Female

DRUGS (1)
  1. NICODERM CQ [Suspect]
     Dates: start: 20061006, end: 20061009

REACTIONS (6)
  - APPLICATION SITE IRRITATION [None]
  - APPLICATION SITE PAIN [None]
  - CHEST DISCOMFORT [None]
  - HEADACHE [None]
  - PALPITATIONS [None]
  - VISUAL DISTURBANCE [None]
